FAERS Safety Report 5970005-8 (Version None)
Quarter: 2008Q4

REPORT INFORMATION
  Report Type: 
  Country: None (occurrence: None)
  Receive Date: 20081126
  Receipt Date: 20081114
  Transmission Date: 20090506
  Serious: Yes (Other)
  Sender: FDA-Public Use
  Company Number: US-PFIZER INC-2008097025

PATIENT
  Sex: Female

DRUGS (1)
  1. AROMASIN [Suspect]
     Route: 048

REACTIONS (6)
  - ARTHROPATHY [None]
  - BACK PAIN [None]
  - BONE PAIN [None]
  - HOT FLUSH [None]
  - JOINT INJURY [None]
  - OEDEMA PERIPHERAL [None]
